FAERS Safety Report 7486361-8 (Version None)
Quarter: 2011Q2

REPORT INFORMATION
  Report Type: 
  Country: None (occurrence: None)
  Receive Date: 20110517
  Receipt Date: 20110509
  Transmission Date: 20111010
  Serious: Yes (Hospitalization)
  Sender: FDA-Public Use
  Company Number: PHHY2011IT39996

PATIENT
  Sex: Male

DRUGS (3)
  1. LANSOPRAZOLE [Suspect]
     Indication: GASTRITIS
     Dosage: 30 MG
     Route: 048
     Dates: start: 20110307, end: 20110327
  2. AUGMENTIN [Concomitant]
     Dosage: 1 G, TID
     Route: 048
     Dates: start: 20110401, end: 20110414
  3. LANSOPRAZOLE [Suspect]
     Dosage: 30 MG
     Route: 048
     Dates: start: 20110406, end: 20110408

REACTIONS (2)
  - HEPATITIS [None]
  - PRURITUS [None]
